FAERS Safety Report 17684074 (Version 1)
Quarter: 2020Q2

REPORT INFORMATION
  Report Type: Spontaneous
  Country: US (occurrence: US)
  Receive Date: 20200420
  Receipt Date: 20200420
  Transmission Date: 20200714
  Serious: No
  Sender: FDA-Public Use
  Company Number: US-ASTRAZENECA-2020SE45163

PATIENT
  Sex: Female

DRUGS (5)
  1. SYMBICORT [Suspect]
     Active Substance: BUDESONIDE\FORMOTEROL FUMARATE DIHYDRATE
     Indication: COUGH
     Dosage: 2 PUFF TWICE DAILY
     Route: 055
     Dates: start: 201912
  2. SYMBICORT [Suspect]
     Active Substance: BUDESONIDE\FORMOTEROL FUMARATE DIHYDRATE
     Indication: ASTHMA
     Dosage: 2 PUFF TWICE DAILY
     Route: 055
     Dates: start: 201912
  3. NOSE DROPS [Concomitant]
     Indication: NASAL DISORDER
     Route: 065
     Dates: start: 2020
  4. SYMBICORT [Suspect]
     Active Substance: BUDESONIDE\FORMOTEROL FUMARATE DIHYDRATE
     Indication: PNEUMONIA
     Dosage: 2 PUFF TWICE DAILY
     Route: 055
     Dates: start: 201912
  5. SYMBICORT [Suspect]
     Active Substance: BUDESONIDE\FORMOTEROL FUMARATE DIHYDRATE
     Indication: CHRONIC OBSTRUCTIVE PULMONARY DISEASE
     Dosage: 2 PUFF TWICE DAILY
     Route: 055
     Dates: start: 201912

REACTIONS (4)
  - Chest discomfort [Unknown]
  - Intentional product misuse [Unknown]
  - Hypersensitivity [Unknown]
  - Upper-airway cough syndrome [Unknown]
